FAERS Safety Report 8645497 (Version 2)
Quarter: 2012Q4

REPORT INFORMATION
  Report Type: Report from Study
  Country: US (occurrence: US)
  Receive Date: 20120702
  Receipt Date: 20120910
  Transmission Date: 20130627
  Serious: Yes (Hospitalization)
  Sender: FDA-Public Use
  Company Number: US-ROCHE-1081582

PATIENT
  Age: 66 Year
  Sex: Female
  Weight: 75 kg

DRUGS (3)
  1. AVASTIN [Suspect]
     Indication: OVARIAN EPITHELIAL CANCER
     Dosage: latest received date:08/Mar/2012
     Route: 065
     Dates: start: 20120216
  2. CARBOPLATIN [Suspect]
     Indication: OVARIAN EPITHELIAL CANCER
     Dosage: latest received date: 22/May/2012
     Route: 065
  3. PACLITAXEL [Suspect]
     Indication: OVARIAN EPITHELIAL CANCER
     Dosage: latest received date: 22/May/2012
     Route: 065

REACTIONS (6)
  - Pyrexia [Recovering/Resolving]
  - Diarrhoea [Recovering/Resolving]
  - Nausea [Recovering/Resolving]
  - Vomiting [Recovering/Resolving]
  - Anaemia [Recovering/Resolving]
  - Large intestine perforation [Recovering/Resolving]
